FAERS Safety Report 4312826-3 (Version None)
Quarter: 2004Q1

REPORT INFORMATION
  Report Type: 
  Country: None (occurrence: None)
  Receive Date: 20040304
  Receipt Date: 20040218
  Transmission Date: 20041129
  Serious: Yes (Other)
  Sender: FDA-Public Use
  Company Number: 2004-DE-00832ZA

PATIENT
  Age: 35 Year
  Sex: Female

DRUGS (4)
  1. NEVIRAPINE (NEVIRAPINE)(TA) [Suspect]
     Indication: HIV INFECTION
     Dosage: 200 MG (200 MG)
     Route: 048
     Dates: start: 19991011, end: 19991025
  2. NEVIRAPINE (NEVIRAPINE) (TA) [Suspect]
     Indication: HIV INFECTION
     Dosage: 400 MG (200 MG)
     Route: 048
     Dates: start: 19991025, end: 20000918
  3. EMTRICITABINE (EMTRICITABINE)(NR) [Suspect]
     Indication: HIV INFECTION
     Dosage: 200 MG (200 MG)
     Route: 048
     Dates: start: 19991011, end: 20000918
  4. EPIVIR [Suspect]
     Indication: HIV INFECTION
     Dosage: 300 MG (300 MG)
     Route: 048
     Dates: start: 19991011, end: 20000918

REACTIONS (3)
  - ABORTION INDUCED [None]
  - COMPLICATIONS OF MATERNAL EXPOSURE TO THERAPEUTIC DRUGS [None]
  - MATERNAL DRUGS AFFECTING FOETUS [None]
